FAERS Safety Report 12785817 (Version 2)
Quarter: 2016Q4

REPORT INFORMATION
  Report Type: Spontaneous
  Country: US (occurrence: US)
  Receive Date: 20160927
  Receipt Date: 20161007
  Transmission Date: 20170207
  Serious: No
  Sender: FDA-Public Use
  Company Number: PHEH2016US024399

PATIENT
  Age: 60 Year
  Sex: Female

DRUGS (1)
  1. FORADIL [Suspect]
     Active Substance: FORMOTEROL FUMARATE
     Indication: DYSPNOEA
     Dosage: UNK
     Route: 055
     Dates: start: 2012

REACTIONS (4)
  - Dyspnoea [Unknown]
  - Product use issue [Unknown]
  - Dysphonia [Unknown]
  - Malaise [Unknown]
